FAERS Safety Report 18202323 (Version 1)
Quarter: 2020Q3

REPORT INFORMATION
  Report Type: Spontaneous
  Country: GB (occurrence: GB)
  Receive Date: 20200827
  Receipt Date: 20200827
  Transmission Date: 20201103
  Serious: Yes (Other)
  Sender: FDA-Public Use
  Company Number: GB-TEVA-2020-GB-1819739

PATIENT
  Age: 30 Year
  Sex: Female
  Weight: 132 kg

DRUGS (4)
  1. SERTRALINE [Concomitant]
     Active Substance: SERTRALINE HYDROCHLORIDE
  2. PROGESTERONE. [Suspect]
     Active Substance: PROGESTERONE
     Indication: CONTRACEPTION
     Dosage: MISSED 2 DOSES.
  3. NEXPLANON [Suspect]
     Active Substance: ETONOGESTREL
     Indication: CONTRACEPTION
     Dosage: UNIT DOSE : 68 MILLIGRAM
     Route: 003
     Dates: start: 20170422, end: 20200421
  4. DESOGESTREL [Concomitant]
     Active Substance: DESOGESTREL

REACTIONS (4)
  - Maternal exposure during pregnancy [Unknown]
  - Pregnancy on contraceptive [Recovered/Resolved with Sequelae]
  - Expired product administered [Unknown]
  - Amenorrhoea [Unknown]

NARRATIVE: CASE EVENT DATE: 20200622
